FAERS Safety Report 11648154 (Version 2)
Quarter: 2015Q4

REPORT INFORMATION
  Report Type: Report from Study
  Country: US (occurrence: US)
  Receive Date: 20151021
  Receipt Date: 20151030
  Transmission Date: 20160304
  Serious: Yes (Hospitalization)
  Sender: FDA-Public Use
  Company Number: US-BIOGENIDEC-2015BI140960

PATIENT
  Age: 57 Year
  Sex: Female

DRUGS (18)
  1. TECFIDERA [Suspect]
     Active Substance: DIMETHYL FUMARATE
     Indication: MULTIPLE SCLEROSIS
     Route: 048
     Dates: start: 20140709, end: 20150928
  2. ALLEGRA [Concomitant]
     Active Substance: FEXOFENADINE HYDROCHLORIDE
  3. CATAPRES [Concomitant]
     Active Substance: CLONIDINE HYDROCHLORIDE
  4. PROVIGIL [Concomitant]
     Active Substance: MODAFINIL
  5. METOPROLOL [Concomitant]
     Active Substance: METOPROLOL
  6. AMPYRA [Concomitant]
     Active Substance: DALFAMPRIDINE
     Indication: MULTIPLE SCLEROSIS
     Route: 048
     Dates: start: 20140911
  7. TRAMADOL. [Concomitant]
     Active Substance: TRAMADOL
  8. BACLOFEN. [Concomitant]
     Active Substance: BACLOFEN
  9. MIRALAX [Concomitant]
     Active Substance: POLYETHYLENE GLYCOL 3350
  10. FLUOROMETHOLONE. [Concomitant]
     Active Substance: FLUOROMETHOLONE
  11. ZOFRAN [Concomitant]
     Active Substance: ONDANSETRON HYDROCHLORIDE
  12. PRILOSEC [Concomitant]
     Active Substance: OMEPRAZOLE MAGNESIUM
  13. ASPIRIN. [Concomitant]
     Active Substance: ASPIRIN
  14. CYMBLATA [Concomitant]
  15. EXCEDRIN MIGRAINE [Concomitant]
     Active Substance: ACETAMINOPHEN\ASPIRIN\CAFFEINE
  16. NORVASC [Concomitant]
     Active Substance: AMLODIPINE BESYLATE
  17. VALIUM [Concomitant]
     Active Substance: DIAZEPAM
  18. METHYLPREDNISOLONE. [Concomitant]
     Active Substance: METHYLPREDNISOLONE

REACTIONS (1)
  - Mechanical ventilation [Recovered/Resolved]

NARRATIVE: CASE EVENT DATE: 201501
